FAERS Safety Report 4664401-9 (Version None)
Quarter: 2005Q2

REPORT INFORMATION
  Report Type: 
  Country: None (occurrence: None)
  Receive Date: 20050518
  Receipt Date: 20050428
  Transmission Date: 20051028
  Serious: Yes (Life-Threatening, Hospitalization, Disabling)
  Sender: FDA-Public Use
  Company Number: DE-MERCK-0504DEU00227

PATIENT
  Age: 80 Year
  Sex: Female
  Weight: 45 kg

DRUGS (4)
  1. VIOXX [Suspect]
     Indication: OSTEOARTHRITIS
     Route: 048
     Dates: start: 20000501, end: 20040612
  2. VIOXX [Suspect]
     Route: 048
     Dates: start: 20000501, end: 20040612
  3. FORMOTEROL FUMARATE [Concomitant]
     Indication: ASTHMA
     Route: 055
  4. EQUILIN SODIUM SULFATE AND ESTRONE SODIUM SULFATE [Concomitant]
     Route: 048
     Dates: start: 19750101

REACTIONS (2)
  - CEREBRAL INFARCTION [None]
  - TRANSIENT ISCHAEMIC ATTACK [None]
